FAERS Safety Report 4753951-2 (Version None)
Quarter: 2005Q3

REPORT INFORMATION
  Report Type: 
  Country: None (occurrence: None)
  Receive Date: 20050826
  Receipt Date: 20050811
  Transmission Date: 20060218
  Serious: Yes (Life-Threatening, Hospitalization, Other)
  Sender: FDA-Public Use
  Company Number: CA-ABBOTT-05P-028-0308235-00

PATIENT
  Sex: Female

DRUGS (5)
  1. EPIVAL TABLETS [Suspect]
     Indication: GRAND MAL CONVULSION
     Route: 048
     Dates: start: 20020101, end: 20050801
  2. COUMADIN [Concomitant]
     Indication: SINUS BRADYCARDIA
     Route: 048
     Dates: start: 20050611
  3. CLOBAZAM [Concomitant]
     Indication: EPILEPSY
     Route: 048
     Dates: start: 20020101
  4. RISPERDAL [Concomitant]
     Indication: SCHIZOPHRENIA
     Route: 048
     Dates: start: 20050101
  5. SENNA FRUIT [Concomitant]
     Indication: CONSTIPATION
     Route: 048
     Dates: start: 20050101

REACTIONS (3)
  - HYPOGLYCAEMIA [None]
  - HYPONATRAEMIA [None]
  - INAPPROPRIATE ANTIDIURETIC HORMONE SECRETION [None]
